FAERS Safety Report 14118937 (Version 1)
Quarter: 2017Q4

REPORT INFORMATION
  Report Type: Spontaneous
  Country: GB (occurrence: GB)
  Receive Date: 20171024
  Receipt Date: 20171024
  Transmission Date: 20180321
  Serious: Yes (Hospitalization)
  Sender: FDA-Public Use
  Company Number: GB-ACCORD-060045

PATIENT
  Age: 16 Year
  Sex: Female

DRUGS (5)
  1. FLUOXETINE [Suspect]
     Active Substance: FLUOXETINE HYDROCHLORIDE
     Route: 048
  2. NAPROXEN. [Suspect]
     Active Substance: NAPROXEN
     Dosage: 28 X 500 MG
  3. METRONIDAZOLE. [Suspect]
     Active Substance: METRONIDAZOLE
  4. COCODAMOL [Suspect]
     Active Substance: ACETAMINOPHEN\CODEINE PHOSPHATE
     Dosage: 10 X 8/500 MG
  5. RAMIPRIL. [Suspect]
     Active Substance: RAMIPRIL
     Dosage: 28 X 5 MG

REACTIONS (7)
  - Condition aggravated [Unknown]
  - Intentional self-injury [Unknown]
  - Suicidal behaviour [Recovered/Resolved with Sequelae]
  - Suicide attempt [Unknown]
  - Suicidal ideation [Unknown]
  - Depressed mood [Unknown]
  - Intentional overdose [Unknown]

NARRATIVE: CASE EVENT DATE: 20170915
